FAERS Safety Report 24859499 (Version 4)
Quarter: 2025Q2

REPORT INFORMATION
  Report Type: Spontaneous
  Country: US (occurrence: US)
  Receive Date: 20250119
  Receipt Date: 20250416
  Transmission Date: 20250717
  Serious: Yes (Hospitalization)
  Sender: GLENMARK
  Company Number: US-GLENMARK PHARMACEUTICALS-2024GMK095728

PATIENT

DRUGS (2)
  1. ESTRADIOL [Suspect]
     Active Substance: ESTRADIOL
     Indication: Product used for unknown indication
     Route: 067
  2. ESTRADIOL [Suspect]
     Active Substance: ESTRADIOL

REACTIONS (7)
  - Urinary tract infection [Unknown]
  - Nerve injury [Unknown]
  - Expulsion of medication [Unknown]
  - Product use issue [Unknown]
  - Product size issue [Unknown]
  - Product solubility abnormal [Unknown]
  - Product substitution issue [Unknown]
